FAERS Safety Report 5164919-9 (Version None)
Quarter: 2006Q4

REPORT INFORMATION
  Report Type: 
  Country: None (occurrence: None)
  Receive Date: 20061205
  Receipt Date: 20061123
  Transmission Date: 20070319
  Serious: Yes (Other)
  Sender: FDA-Public Use
  Company Number: DE-ELI_LILLY_AND_COMPANY-DE200611004939

PATIENT
  Sex: Female

DRUGS (2)
  1. CYMBALTA [Suspect]
     Dosage: UNK, UNK
     Route: 048
     Dates: start: 20060809
  2. CYMBALTA [Suspect]
     Dosage: 120 MG, DAILY (1/D)

REACTIONS (2)
  - COLITIS ULCERATIVE [None]
  - CONSTIPATION [None]
